FAERS Safety Report 23407539 (Version 2)
Quarter: 2024Q1

REPORT INFORMATION
  Report Type: Spontaneous
  Country: US (occurrence: US)
  Receive Date: 20240117
  Receipt Date: 20240119
  Transmission Date: 20240410
  Serious: No
  Sender: FDA-Public Use
  Company Number: US-OPELLA-2024OHG001011

PATIENT
  Sex: Female

DRUGS (2)
  1. CAPSAICIN [Suspect]
     Active Substance: CAPSAICIN
  2. CAPSAICIN\MENTHOL [Suspect]
     Active Substance: CAPSAICIN\MENTHOL

REACTIONS (2)
  - Product quality issue [Unknown]
  - Application site pain [Unknown]
